FAERS Safety Report 25276735 (Version 1)
Quarter: 2025Q2

REPORT INFORMATION
  Report Type: Other
  Country: ES (occurrence: ES)
  Receive Date: 20250507
  Receipt Date: 20250507
  Transmission Date: 20250717
  Serious: Yes (Other)
  Sender: STRIDES
  Company Number: ES-STRIDES ARCOLAB LIMITED-2025SP005385

PATIENT
  Age: 68 Year
  Sex: Male

DRUGS (9)
  1. GABAPENTIN [Suspect]
     Active Substance: GABAPENTIN
     Indication: Product used for unknown indication
     Route: 048
     Dates: start: 20221004
  2. QUETIAPINE [Suspect]
     Active Substance: QUETIAPINE
     Indication: Impulse-control disorder
     Route: 048
     Dates: start: 20221004, end: 20230509
  3. ALPRAZOLAM [Suspect]
     Active Substance: ALPRAZOLAM
     Indication: Behaviour disorder
     Route: 048
     Dates: start: 20221004, end: 20230509
  4. LORAZEPAM [Suspect]
     Active Substance: LORAZEPAM
     Indication: Behaviour disorder
     Route: 048
     Dates: start: 20221004
  5. CLOMETHIAZOLE [Suspect]
     Active Substance: CLOMETHIAZOLE
     Indication: Behaviour disorder
     Route: 048
     Dates: start: 20221004, end: 20230509
  6. TRYPTIZOL [Suspect]
     Active Substance: AMITRIPTYLINE HYDROCHLORIDE
     Indication: Behaviour disorder
     Route: 048
     Dates: start: 20221004, end: 20230509
  7. DULOXETINE HYDROCHLORIDE [Suspect]
     Active Substance: DULOXETINE HYDROCHLORIDE
     Indication: Mixed anxiety and depressive disorder
     Route: 048
     Dates: start: 20221004, end: 20230509
  8. MIRTAZAPINE [Suspect]
     Active Substance: MIRTAZAPINE
     Indication: Insomnia
     Route: 048
     Dates: start: 20221004, end: 20230509
  9. CYTISINICLINE [Suspect]
     Active Substance: CYTISINICLINE
     Indication: Tobacco abuse
     Route: 048
     Dates: start: 20230506, end: 20230509

REACTIONS (3)
  - Depressed level of consciousness [Recovered/Resolved]
  - Somnolence [Recovered/Resolved]
  - Asthenia [Recovered/Resolved]

NARRATIVE: CASE EVENT DATE: 20230507
